FAERS Safety Report 7443974-7 (Version None)
Quarter: 2011Q2

REPORT INFORMATION
  Report Type: 
  Country: None (occurrence: None)
  Receive Date: 20110429
  Receipt Date: 20110421
  Transmission Date: 20111010
  Serious: No
  Sender: FDA-Public Use
  Company Number: US-BIOGENIDEC-2010BI042793

PATIENT
  Sex: Female

DRUGS (1)
  1. TYSABRI [Suspect]
     Indication: MULTIPLE SCLEROSIS
     Route: 042
     Dates: start: 20100817

REACTIONS (6)
  - URINARY INCONTINENCE [None]
  - FAECAL INCONTINENCE [None]
  - FATIGUE [None]
  - IRRITABILITY [None]
  - DRUG INEFFECTIVE [None]
  - POOR VENOUS ACCESS [None]
